FAERS Safety Report 5447337-5 (Version None)
Quarter: 2007Q3

REPORT INFORMATION
  Report Type: 
  Country: None (occurrence: None)
  Receive Date: 20070910
  Receipt Date: 20070905
  Transmission Date: 20080115
  Serious: Yes (Hospitalization)
  Sender: FDA-Public Use
  Company Number: US-BRISTOL-MYERS SQUIBB COMPANY-13897970

PATIENT
  Age: 55 Year
  Sex: Female
  Weight: 81 kg

DRUGS (7)
  1. CETUXIMAB [Suspect]
     Indication: COLON CANCER
     Dosage: PATIENT REMOVED FROM PROTOCOL TREATMENT ON 20-AUG-2007.
     Route: 042
     Dates: start: 20070808, end: 20070808
  2. LEUCOVORIN CALCIUM [Suspect]
     Indication: COLON CANCER
     Dosage: PATIENT REMOVED FROM PROTOCOL TREATMENT ON 20-AUG-2007
     Route: 042
     Dates: start: 20070808, end: 20070808
  3. FLUOROURACIL [Suspect]
     Indication: COLON CANCER
     Dosage: PATIENT REMOVED FROM PROTOCOL TREATMENT ON 20-AUG-2007
     Route: 042
     Dates: start: 20070808, end: 20070808
  4. OXALIPLATIN [Suspect]
     Indication: COLON CANCER
     Dosage: PATIENT REMOVED FROM PROTOCOL TREATMENT ON 20-AUG-2007
     Route: 042
     Dates: start: 20070808, end: 20070808
  5. EMEND [Suspect]
  6. MARINOL [Suspect]
  7. PROTONIX [Suspect]

REACTIONS (2)
  - INFECTION [None]
  - URETERIC OBSTRUCTION [None]
